FAERS Safety Report 13923044 (Version 5)
Quarter: 2019Q3

REPORT INFORMATION
  Report Type: Spontaneous
  Country: JP (occurrence: JP)
  Receive Date: 20170831
  Receipt Date: 20190729
  Transmission Date: 20191004
  Serious: Yes (Death, Hospitalization, Other)
  Sender: FDA-Public Use
  Company Number: JP-ROCHE-1986892

PATIENT
  Age: 70 Year
  Sex: Female
  Weight: 39 kg

DRUGS (15)
  1. PACLITAXEL. [Concomitant]
     Active Substance: PACLITAXEL
     Indication: BREAST CANCER
     Dosage: 1 DAYS ADMINISTRATION FOLLOWED BY 2 DAYS REST,1 COURSES?THE FRACTIONATION DOSE FREQUENCY IS UNCERTA
     Route: 041
     Dates: start: 2017, end: 2017
  2. PREDONINE [Concomitant]
     Active Substance: PREDNISOLONE
     Dosage: DOSAGE IS UNCERTAIN.
     Route: 065
  3. PACLITAXEL. [Concomitant]
     Active Substance: PACLITAXEL
     Indication: BREAST CANCER
     Dosage: 1 DAYS ADMINISTRATION FOLLOWED BY 2 DAYS REST,1 COURSES?THE FRACTIONATION DOSE FREQUENCY IS UNCERTA
     Route: 041
     Dates: start: 2017, end: 20170804
  4. PACLITAXEL. [Concomitant]
     Active Substance: PACLITAXEL
     Indication: BREAST CANCER
     Dosage: 2 DAYS ADMINISTRATION FOLLOWED BY 1 DAYS REST,3 COURSES?THE FRACTIONATION DOSE FREQUENCY IS UNCERTA
     Route: 041
     Dates: start: 20170202, end: 2017
  5. PACLITAXEL. [Concomitant]
     Active Substance: PACLITAXEL
     Indication: BREAST CANCER
     Dosage: 1 DAYS ADMINISTRATION FOLLOWED BY 2 DAYS REST,1 COURSES?THE FRACTIONATION DOSE FREQUENCY IS UNCERTA
     Route: 041
     Dates: start: 2017, end: 2017
  6. RANMARK [Concomitant]
     Active Substance: DENOSUMAB
     Dosage: DOSAGE IS UNCERTAIN.
     Route: 065
     Dates: start: 20170202
  7. EQUA [Concomitant]
     Active Substance: VILDAGLIPTIN
     Dosage: DOSAGE IS UNCERTAIN.
     Route: 065
     Dates: end: 201705
  8. AVASTIN [Suspect]
     Active Substance: BEVACIZUMAB
     Indication: BREAST CANCER
     Dosage: TREATMENT LINE: FIRST LINE?1 DAYS ADMINISTRATION FOLLOWED BY 1 DAYS OF REST
     Route: 041
     Dates: start: 20170202, end: 20170317
  9. RABEPRAZOLE SODIUM. [Concomitant]
     Active Substance: RABEPRAZOLE SODIUM
     Dosage: DOSAGE IS UNCERTAIN.
     Route: 065
  10. AVASTIN [Suspect]
     Active Substance: BEVACIZUMAB
     Indication: BREAST CANCER
     Dosage: 1 DAYS ADMINISTRATION FOLLOWED BY 1 DAYS REST?MOST RECENT DOSE ON 04/AUG/2017.
     Route: 041
     Dates: start: 20170331
  11. NEORAL [Concomitant]
     Active Substance: CYCLOSPORINE
     Dosage: DOSAGE IS UNCERTAIN.
     Route: 065
  12. NESP [Concomitant]
     Active Substance: DARBEPOETIN ALFA
     Dosage: DOSAGE IS UNCERTAIN.
     Route: 065
  13. DENOTAS [Concomitant]
     Active Substance: CALCIUM CARBONATE\CHOLECALCIFEROL\MAGNESIUM CARBONATE
     Dosage: DOSAGE IS UNCERTAIN.
     Route: 048
     Dates: start: 20170202
  14. ATORVASTATIN [Concomitant]
     Active Substance: ATORVASTATIN
     Dosage: DOSAGE IS UNCERTAIN.
     Route: 065
     Dates: end: 201705
  15. PACLITAXEL. [Concomitant]
     Active Substance: PACLITAXEL
     Indication: BREAST CANCER
     Dosage: 1 DAYS ADMINISTRATION FOLLOWED BY 2 DAYS REST,1 COURSES?THE FRACTIONATION DOSE FREQUENCY IS UNCERTA
     Route: 041
     Dates: start: 2017, end: 2017

REACTIONS (6)
  - Hepatic failure [Fatal]
  - Decreased appetite [Unknown]
  - Malaise [Unknown]
  - Blood alkaline phosphatase increased [Unknown]
  - Hepatic atrophy [Fatal]
  - Neutrophil count decreased [Unknown]

NARRATIVE: CASE EVENT DATE: 20170331
